FAERS Safety Report 23708869 (Version 1)
Quarter: 2024Q2

REPORT INFORMATION
  Report Type: Report from Study
  Country: PT (occurrence: PT)
  Receive Date: 20240404
  Receipt Date: 20240404
  Transmission Date: 20240716
  Serious: Yes (Hospitalization, Other)
  Sender: FDA-Public Use
  Company Number: PT-ROCHE-2090935

PATIENT
  Age: 42 Year
  Sex: Female
  Weight: 57 kg

DRUGS (18)
  1. ENHERTU [Suspect]
     Active Substance: FAM-TRASTUZUMAB DERUXTECAN-NXKI
     Indication: HER2 positive breast cancer
     Dosage: 340 MG, ONCE EVERY 3 WK
     Route: 042
     Dates: start: 20220323, end: 20220909
  2. PERTUZUMAB [Suspect]
     Active Substance: PERTUZUMAB
     Indication: HER2 positive breast cancer
     Dosage: 420 MG, ONCE EVERY 3 WK
     Route: 042
     Dates: start: 20170606, end: 20180406
  3. KADCYLA [Suspect]
     Active Substance: ADO-TRASTUZUMAB EMTANSINE
     Indication: HER2 positive breast cancer
     Dosage: 3.6 MG/KG, ONCE EVERY 3 WK
     Route: 042
     Dates: start: 20190213, end: 20190327
  4. KADCYLA [Suspect]
     Active Substance: ADO-TRASTUZUMAB EMTANSINE
     Dosage: 3.6 MG/KG, ONCE EVERY 3 WK
     Route: 042
     Dates: start: 20190517, end: 20190606
  5. KADCYLA [Suspect]
     Active Substance: ADO-TRASTUZUMAB EMTANSINE
     Dosage: 3.6 MG/KG, ONCE EVERY 3 WK
     Route: 042
     Dates: start: 20190628, end: 20190717
  6. KADCYLA [Suspect]
     Active Substance: ADO-TRASTUZUMAB EMTANSINE
     Dosage: 3.6 MG/KG, ONCE EVERY 3 WK
     Route: 042
     Dates: start: 20190726, end: 20190814
  7. KADCYLA [Suspect]
     Active Substance: ADO-TRASTUZUMAB EMTANSINE
     Dosage: 226.8 MG, ONCE EVERY 3 WK
     Route: 042
     Dates: start: 20180806, end: 20190628
  8. KADCYLA [Suspect]
     Active Substance: ADO-TRASTUZUMAB EMTANSINE
     Dosage: 180 MG, ONCE EVERY 3 WK
     Route: 042
     Dates: start: 20190930, end: 20191001
  9. KADCYLA [Suspect]
     Active Substance: ADO-TRASTUZUMAB EMTANSINE
     Dosage: 144 MG, ONCE EVERY 3 WK
     Route: 042
     Dates: start: 20191106, end: 20200522
  10. HERCEPTIN [Suspect]
     Active Substance: TRASTUZUMAB
     Indication: HER2 positive breast cancer
     Dosage: 342 MG, ONCE EVERY 3 WK
     Route: 042
     Dates: start: 20170606, end: 20180406
  11. HERCEPTIN [Suspect]
     Active Substance: TRASTUZUMAB
     Dosage: 600 MG, ONCE EVERY 1 MO
     Route: 042
     Dates: start: 20200615
  12. TAXOTERE [Suspect]
     Active Substance: DOCETAXEL
     Indication: HER2 positive breast cancer
     Dosage: 122 MG, ONCE EVERY 3 WK
     Route: 042
     Dates: start: 20170606, end: 20170704
  13. TAXOTERE [Suspect]
     Active Substance: DOCETAXEL
     Dosage: 91.5 MG, ONCE EVERY 3 WK
     Route: 042
     Dates: start: 20170718, end: 20171102
  14. NAVELBINE [Suspect]
     Active Substance: VINORELBINE TARTRATE
     Indication: HER2 positive breast cancer
     Dosage: 50 MG
     Route: 048
     Dates: start: 20200615, end: 20200831
  15. NAVELBINE [Suspect]
     Active Substance: VINORELBINE TARTRATE
     Dosage: 30 MG/M2, ONCE A WEEK, TWO WEEKS IN A ROW WITH 2-
     Route: 042
     Dates: start: 20200615, end: 20210301
  16. NAVELBINE [Suspect]
     Active Substance: VINORELBINE TARTRATE
     Dosage: 100 MG, ONCE A WEEK, TWO WEEKS IN A ROW WITH 2-WEEK BREAK
     Route: 048
     Dates: start: 20210426
  17. ACETAMINOPHEN [Concomitant]
     Active Substance: ACETAMINOPHEN
     Indication: Pyrexia
     Dosage: 1000 MG
     Route: 065
     Dates: start: 20170704
  18. BISOPROLOL [Concomitant]
     Active Substance: BISOPROLOL\BISOPROLOL FUMARATE
     Indication: Product used for unknown indication
     Dosage: 1 MG
     Route: 065

REACTIONS (5)
  - Neutropenia [Recovered/Resolved]
  - Neutropenia [Recovered/Resolved]
  - Neutropenia [Recovered/Resolved]
  - Febrile neutropenia [Recovered/Resolved]
  - Neutrophilia [Recovered/Resolved]

NARRATIVE: CASE EVENT DATE: 20170704
